FAERS Safety Report 10163942 (Version 1)
Quarter: 2014Q2

REPORT INFORMATION
  Report Type: Spontaneous
  Country: US (occurrence: US)
  Receive Date: 20140510
  Receipt Date: 20140510
  Transmission Date: 20141212
  Serious: No
  Sender: FDA-Public Use
  Company Number: US-BRISTOL-MYERS SQUIBB COMPANY-19673326

PATIENT
  Age: 56 Year
  Sex: Male
  Weight: 91.61 kg

DRUGS (2)
  1. BYETTA [Suspect]
     Indication: TYPE 2 DIABETES MELLITUS
     Dates: start: 2005
  2. METFORMIN [Concomitant]
     Route: 048

REACTIONS (1)
  - Nausea [Not Recovered/Not Resolved]
